FAERS Safety Report 7795470-5 (Version None)
Quarter: 2011Q4

REPORT INFORMATION
  Report Type: 
  Country: None (occurrence: None)
  Receive Date: 20111004
  Receipt Date: 20110927
  Transmission Date: 20120403
  Serious: Yes (Death, Hospitalization, Other)
  Sender: FDA-Public Use
  Company Number: US-ACTELION-A-NJ2011-53766

PATIENT

DRUGS (7)
  1. EPOPROSTENOL SODIUM [Suspect]
     Dosage: 4.7 NG/KG, PER MIN
     Route: 041
     Dates: start: 20110907, end: 20110907
  2. PREDNISONE [Concomitant]
     Dosage: 10 MG, QD
  3. EPOPROSTENOL SODIUM [Suspect]
     Indication: PULMONARY ARTERIAL HYPERTENSION
     Dosage: 5.4 NG/KG, PER MIN
     Route: 041
     Dates: start: 20110907, end: 20110907
  4. FLOLAN [Concomitant]
     Dosage: UNK
     Dates: end: 20110907
  5. BUMEX [Concomitant]
     Dosage: 2 MG, BID
  6. ALDACTONE [Concomitant]
     Dosage: 50 MG, BID
  7. OXYGEN [Concomitant]
     Dosage: 6 L/MIN, UNK

REACTIONS (6)
  - ENDOTRACHEAL INTUBATION [None]
  - VENTRICULAR TACHYCARDIA [None]
  - DEATH [None]
  - DYSPNOEA [None]
  - CARDIO-RESPIRATORY ARREST [None]
  - OXYGEN SATURATION DECREASED [None]
